FAERS Safety Report 4691769-X (Version None)
Quarter: 2005Q2

REPORT INFORMATION
  Report Type: 
  Country: None (occurrence: None)
  Receive Date: 20050616
  Receipt Date: 20050602
  Transmission Date: 20051028
  Serious: Yes (Other)
  Sender: FDA-Public Use
  Company Number: GBWYE715703JUN05

PATIENT
  Sex: Female

DRUGS (6)
  1. ENBREL [Suspect]
     Indication: DRUG USE FOR UNKNOWN INDICATION
     Dates: start: 20041101
  2. ENBREL [Suspect]
     Dates: start: 20050101
  3. VERAPAMIL [Concomitant]
     Dosage: 120,G FREQUENCY UNKNOWN
  4. ISONIAZID [Concomitant]
  5. PYRIDOXIN [Concomitant]
  6. DESLORATADINE [Concomitant]

REACTIONS (2)
  - HEART RATE INCREASED [None]
  - LETHARGY [None]
